FAERS Safety Report 24028311 (Version 1)
Quarter: 2024Q2

REPORT INFORMATION
  Report Type: Spontaneous
  Country: CN (occurrence: CN)
  Receive Date: 20240628
  Receipt Date: 20240628
  Transmission Date: 20240715
  Serious: Yes (Other)
  Sender: FDA-Public Use
  Company Number: CN-MLMSERVICE-20240611-PI094226-00082-1

PATIENT
  Age: 4 Year
  Sex: Female

DRUGS (5)
  1. CARBOPLATIN [Suspect]
     Active Substance: CARBOPLATIN
     Indication: Hepatoblastoma
     Dosage: ONE COURSE
  2. CISPLATIN [Suspect]
     Active Substance: CISPLATIN
     Indication: Hepatoblastoma
     Dosage: ONE COURSE (DDP), TWO COURSE (DDP +  THP)
  3. ETOPOSIDE [Suspect]
     Active Substance: ETOPOSIDE
     Indication: Hepatoblastoma
     Dosage: ONE COURSE
  4. IFOSFAMIDE [Suspect]
     Active Substance: IFOSFAMIDE
     Indication: Hepatoblastoma
     Dosage: ONE COURSE
  5. PIRARUBICIN [Suspect]
     Active Substance: PIRARUBICIN
     Indication: Hepatoblastoma
     Dosage: TWO COURSES

REACTIONS (3)
  - Agranulocytosis [Unknown]
  - Anaemia [Unknown]
  - Thrombocytopenia [Unknown]
